FAERS Safety Report 7768183-3 (Version None)
Quarter: 2011Q3

REPORT INFORMATION
  Report Type: 
  Country: None (occurrence: None)
  Receive Date: 20110922
  Receipt Date: 20110922
  Transmission Date: 20111222
  Serious: Yes (Hospitalization)
  Sender: FDA-Public Use
  Company Number: None

PATIENT
  Sex: Male
  Weight: 79.378 kg

DRUGS (1)
  1. ULTRAVIST 150 [Suspect]
     Indication: MEDIASTINAL MASS
     Dosage: 55ML
     Route: 040
     Dates: start: 20110913, end: 20110913

REACTIONS (6)
  - VOMITING [None]
  - LARYNGEAL OEDEMA [None]
  - CARDIO-RESPIRATORY ARREST [None]
  - PRODUCT QUALITY ISSUE [None]
  - DYSPHONIA [None]
  - CONTRAST MEDIA REACTION [None]
